FAERS Safety Report 8843644 (Version 1)
Quarter: 2012Q4

REPORT INFORMATION
  Report Type: 
  Country: JP (occurrence: JP)
  Receive Date: 20121016
  Receipt Date: 20121016
  Transmission Date: 20130627
  Serious: Yes (Other)
  Sender: FDA-Public Use
  Company Number: JP-ROCHE-1143323

PATIENT
  Age: 73 Year
  Sex: Female

DRUGS (4)
  1. TOCILIZUMAB [Suspect]
     Indication: RHEUMATOID ARTHRITIS
     Route: 042
     Dates: start: 200805
  2. TOCILIZUMAB [Suspect]
     Route: 042
  3. ETANERCEPT [Concomitant]
     Indication: RHEUMATOID ARTHRITIS
     Dosage: 25 mg a week
     Route: 065
     Dates: start: 201003
  4. PREDNISOLONE [Concomitant]
     Route: 065

REACTIONS (1)
  - Skin ulcer [Unknown]
